FAERS Safety Report 4431518-3 (Version None)
Quarter: 2004Q3

REPORT INFORMATION
  Report Type: 
  Country: None (occurrence: None)
  Receive Date: 20040726
  Receipt Date: 20040422
  Transmission Date: 20050211
  Serious: No
  Sender: FDA-Public Use
  Company Number: USA040464970

PATIENT
  Age: 67 Year
  Sex: Female

DRUGS (6)
  1. FORTEO [Suspect]
     Indication: OSTEOPOROSIS
     Dates: start: 20031101
  2. CALCIUM CARBONATE + VITAMIN D [Concomitant]
  3. MIACALCIN [Concomitant]
  4. ACETAMINOPHEN AND HYDROCODONE BITARTRATE [Concomitant]
  5. PREDNISONE [Concomitant]
  6. NEXIUM [Concomitant]

REACTIONS (1)
  - GASTROENTERITIS VIRAL [None]
